FAERS Safety Report 4296493-3 (Version None)
Quarter: 2004Q1

REPORT INFORMATION
  Report Type: 
  Country: None (occurrence: None)
  Receive Date: 20040217
  Receipt Date: 20030523
  Transmission Date: 20041129
  Serious: Yes (Other)
  Sender: FDA-Public Use
  Company Number: PHNU2003DE02142

PATIENT
  Age: 60 Year
  Sex: Male
  Weight: 69 kg

DRUGS (2)
  1. LOCOL [Suspect]
     Indication: LIPIDS ABNORMAL
     Dosage: 20 MG, QD
     Route: 048
     Dates: start: 20030901
  2. LOCOL [Suspect]
     Dosage: 20 MG, QD
     Route: 048
     Dates: start: 20020201, end: 20030501

REACTIONS (8)
  - ALANINE AMINOTRANSFERASE INCREASED [None]
  - ARTHRALGIA [None]
  - ARTHRITIS [None]
  - BLOOD BILIRUBIN INCREASED [None]
  - BONE PAIN [None]
  - GAMMA-GLUTAMYLTRANSFERASE INCREASED [None]
  - LIVER FUNCTION TEST ABNORMAL [None]
  - SOFT TISSUE DISORDER [None]
